FAERS Safety Report 10041971 (Version 1)
Quarter: 2014Q1

REPORT INFORMATION
  Report Type: Spontaneous
  Country: US (occurrence: US)
  Receive Date: 20140327
  Receipt Date: 20140327
  Transmission Date: 20141002
  Serious: Yes (Other)
  Sender: FDA-Public Use
  Company Number: US-TEVA-471724USA

PATIENT
  Age: 20 Year
  Sex: Female
  Weight: 64.92 kg

DRUGS (2)
  1. PARAGARD 380A [Suspect]
     Indication: CONTRACEPTION
     Route: 015
     Dates: start: 20140301, end: 20140317
  2. VITAMINS [Concomitant]
     Indication: VITAMIN SUPPLEMENTATION

REACTIONS (6)
  - Pregnancy with contraceptive device [Recovered/Resolved]
  - Drug ineffective [Recovered/Resolved]
  - Uterine haemorrhage [Recovered/Resolved]
  - Abortion spontaneous [Recovered/Resolved]
  - Device dislocation [Recovered/Resolved]
  - Pelvic pain [Recovered/Resolved]
